FAERS Safety Report 4845759-4 (Version None)
Quarter: 2005Q4

REPORT INFORMATION
  Report Type: 
  Country: None (occurrence: None)
  Receive Date: 20051130
  Receipt Date: 20051117
  Transmission Date: 20060501
  Serious: Yes (Hospitalization, Other)
  Sender: FDA-Public Use
  Company Number: HQWYE038614OCT05

PATIENT
  Age: 19 Year
  Sex: Female

DRUGS (1)
  1. MINOCIN [Suspect]
     Indication: PNEUMONIA MYCOPLASMAL
     Dosage: 200MG DAILY INTRAVENOUS DRIP
     Route: 041
     Dates: start: 20050102, end: 20050103

REACTIONS (4)
  - ENCEPHALITIS HERPES [None]
  - HYPERSENSITIVITY [None]
  - LIVER DISORDER [None]
  - PARESIS [None]
